FAERS Safety Report 7189346-4 (Version None)
Quarter: 2010Q4

REPORT INFORMATION
  Report Type: 
  Country: None (occurrence: None)
  Receive Date: 20101222
  Receipt Date: 20100816
  Transmission Date: 20110411
  Serious: No
  Sender: FDA-Public Use
  Company Number: US-AMGEN-KDL428055

PATIENT

DRUGS (3)
  1. ENBREL [Suspect]
     Indication: ANKYLOSING SPONDYLITIS
     Dosage: 50 MG, 2 TIMES/WK
     Route: 058
     Dates: start: 20070910
  2. ENBREL [Suspect]
     Indication: PSORIATIC ARTHROPATHY
  3. ENBREL [Suspect]
     Indication: PSORIASIS

REACTIONS (6)
  - ACNE [None]
  - EYELID INFECTION [None]
  - INJECTION SITE PAIN [None]
  - INTENTIONAL DRUG MISUSE [None]
  - PSORIASIS [None]
  - ROSACEA [None]
